FAERS Safety Report 7199775-0 (Version None)
Quarter: 2010Q4

REPORT INFORMATION
  Report Type: 
  Country: None (occurrence: None)
  Receive Date: 20101228
  Receipt Date: 20100402
  Transmission Date: 20110411
  Serious: No
  Sender: FDA-Public Use
  Company Number: US-KINGPHARMUSA00001-K201000398

PATIENT
  Sex: Female

DRUGS (6)
  1. CORGARD [Suspect]
     Indication: HYPERTENSION
     Dosage: 80 MG, QD
     Route: 048
     Dates: start: 19900101
  2. CORGARD [Suspect]
     Indication: ARRHYTHMIA
  3. ZOLOFT [Concomitant]
     Indication: PREMENSTRUAL SYNDROME
     Dosage: UNK
     Route: 048
  4. HORMONES AND RELATED AGENTS [Concomitant]
     Indication: MENOPAUSE
     Dosage: UNK
     Route: 048
  5. AMERGE [Concomitant]
     Indication: MIGRAINE
     Dosage: UNK
     Route: 048
  6. AMERGE [Concomitant]
     Indication: HEADACHE

REACTIONS (7)
  - CHEST PAIN [None]
  - DRUG INEFFECTIVE [None]
  - DYSPNOEA [None]
  - EXERCISE TOLERANCE DECREASED [None]
  - HEADACHE [None]
  - HEART RATE IRREGULAR [None]
  - MIGRAINE [None]
